FAERS Safety Report 16137004 (Version 2)
Quarter: 2019Q2

REPORT INFORMATION
  Report Type: Spontaneous
  Country: ES (occurrence: ES)
  Receive Date: 20190329
  Receipt Date: 20190404
  Transmission Date: 20190711
  Serious: Yes (Other)
  Sender: FDA-Public Use
  Company Number: PHHY2019ES066461

PATIENT
  Age: 73 Year
  Sex: Female

DRUGS (1)
  1. HYDROCHLOROTHIAZIDE. [Suspect]
     Active Substance: HYDROCHLOROTHIAZIDE
     Indication: HYPERTENSION
     Route: 065

REACTIONS (6)
  - Rash [Recovered/Resolved]
  - Hyperkeratosis [Recovered/Resolved]
  - Alopecia [Recovered/Resolved]
  - Lichen planus [Recovered/Resolved]
  - Rash pruritic [Recovered/Resolved]
  - Chronic actinic dermatitis [Recovered/Resolved]

NARRATIVE: CASE EVENT DATE: 201704
